FAERS Safety Report 12496630 (Version 1)
Quarter: 2016Q2

REPORT INFORMATION
  Report Type: Spontaneous
  Country: IT (occurrence: IT)
  Receive Date: 20160624
  Receipt Date: 20160624
  Transmission Date: 20160815
  Serious: Yes (Other)
  Sender: FDA-Public Use
  Company Number: IT-FRESENIUS KABI-FK201603886

PATIENT
  Age: 30 Year
  Sex: Male

DRUGS (2)
  1. GEMCITABINE [Suspect]
     Active Substance: GEMCITABINE\GEMCITABINE HYDROCHLORIDE
     Indication: PANCREATIC CARCINOMA METASTATIC
     Route: 065
  2. VINORELBINE BITARTRATE [Suspect]
     Active Substance: VINORELBINE\VINORELBINE TARTRATE
     Indication: PANCREATIC CARCINOMA METASTATIC

REACTIONS (6)
  - General physical health deterioration [Unknown]
  - Blood alkaline phosphatase increased [Unknown]
  - Weight decreased [Unknown]
  - Gamma-glutamyltransferase increased [Unknown]
  - Pain [Unknown]
  - Abdominal pain [Unknown]
